FAERS Safety Report 23524166 (Version 3)
Quarter: 2024Q2

REPORT INFORMATION
  Report Type: Spontaneous
  Country: US (occurrence: US)
  Receive Date: 20240214
  Receipt Date: 20240424
  Transmission Date: 20240716
  Serious: No
  Sender: FDA-Public Use
  Company Number: US-PFIZER INC-202400039754

PATIENT
  Age: 70 Year
  Sex: Female
  Weight: 68.027 kg

DRUGS (2)
  1. PAXLOVID [Suspect]
     Active Substance: NIRMATRELVIR\RITONAVIR
     Indication: COVID-19 treatment
     Dosage: 4 DF, 2X/DAY
     Dates: start: 20240128, end: 20240202
  2. TENORMIN [Concomitant]
     Active Substance: ATENOLOL
     Dosage: 25 MG (FOR 30+ YEARS)

REACTIONS (4)
  - COVID-19 [Recovered/Resolved]
  - Disease recurrence [Recovered/Resolved]
  - Irritable bowel syndrome [Not Recovered/Not Resolved]
  - Incorrect dose administered [Unknown]

NARRATIVE: CASE EVENT DATE: 20240128
